FAERS Safety Report 8381866-X (Version None)
Quarter: 2012Q2

REPORT INFORMATION
  Report Type: 
  Country: None (occurrence: None)
  Receive Date: 20120522
  Receipt Date: 20120522
  Transmission Date: 20120825
  Serious: Yes (Hospitalization, Other)
  Sender: FDA-Public Use
  Company Number: None

PATIENT
  Age: 60 Year
  Sex: Female
  Weight: 60.3284 kg

DRUGS (3)
  1. PAXIL [Concomitant]
  2. PREDNISONE [Suspect]
     Indication: NEPHRITIS
     Dosage: 60 MG -3 PILLS- EACH MORNING
     Dates: start: 20110920, end: 20111225
  3. PHENAZOPYRIDINE HCL TAB [Concomitant]

REACTIONS (10)
  - EMOTIONAL DISORDER [None]
  - SCREAMING [None]
  - DEPRESSION [None]
  - SPEECH DISORDER [None]
  - MOVEMENT DISORDER [None]
  - INSOMNIA [None]
  - MOOD SWINGS [None]
  - MANIA [None]
  - DISTURBANCE IN ATTENTION [None]
  - CRYING [None]
